FAERS Safety Report 6785913-8 (Version None)
Quarter: 2010Q2

REPORT INFORMATION
  Report Type: 
  Country: None (occurrence: None)
  Receive Date: 20100623
  Receipt Date: 20100616
  Transmission Date: 20101027
  Serious: Yes (Hospitalization)
  Sender: FDA-Public Use
  Company Number: GB-MPIJNJ-2010-02239

PATIENT

DRUGS (13)
  1. VELCADE [Suspect]
     Indication: MULTIPLE MYELOMA
     Dosage: 1 MG/M2, UNK
  2. DOXORUBICIN HCL [Suspect]
     Indication: MULTIPLE MYELOMA
  3. DEXAMETHASONE ACETATE [Suspect]
     Indication: MULTIPLE MYELOMA
  4. ACYCLOVIR [Concomitant]
     Dosage: 200 MG, UNK
     Dates: start: 20090406, end: 20091210
  5. ALLOPURINOL [Concomitant]
     Dosage: 100 MG, UNK
     Dates: start: 20090406, end: 20091210
  6. BECLOMETHASONE DIPROPIONATE [Concomitant]
     Dosage: UNK
  7. COTRIM [Concomitant]
     Dosage: 480 MG, UNK
     Dates: start: 20090406, end: 20091210
  8. NEORECORMON [Concomitant]
     Dosage: 6000 IU, UNK
     Dates: start: 20090608
  9. LANSOPRAZOLE [Concomitant]
     Dosage: 30 MG, UNK
     Dates: start: 20090516
  10. LEVOTHYROXINE SODIUM [Concomitant]
     Dosage: 100 UG, UNK
  11. PEPTAC                             /01521901/ [Concomitant]
     Dosage: 10 ML, UNK
     Dates: start: 20090501
  12. WARFARIN SODIUM [Concomitant]
     Dosage: 1 MG, UNK
     Dates: start: 20090619
  13. FENTANYL [Concomitant]
     Dosage: UNK
     Dates: start: 20090601

REACTIONS (1)
  - H1N1 INFLUENZA [None]
